FAERS Safety Report 24237971 (Version 3)
Quarter: 2024Q4

REPORT INFORMATION
  Report Type: Spontaneous
  Country: JP (occurrence: JP)
  Receive Date: 20240822
  Receipt Date: 20241214
  Transmission Date: 20250115
  Serious: Yes (Hospitalization, Disabling, Other)
  Sender: AMGEN
  Company Number: JP-AMGEN-JPNSP2024165289

PATIENT
  Age: 74 Year
  Sex: Male
  Weight: 57 kg

DRUGS (5)
  1. EVENITY [Suspect]
     Active Substance: ROMOSOZUMAB-AQQG
     Indication: Osteoporosis
     Dosage: 210 MILLIGRAM, QMO
     Route: 058
     Dates: start: 20240701, end: 20240808
  2. ASPIRIN [Concomitant]
     Active Substance: ASPIRIN
     Indication: Coronary arterial stent insertion
     Dosage: 100 MILLIGRAM, QD
     Route: 065
     Dates: start: 200811, end: 20240801
  3. SITAGLIPTIN [Concomitant]
     Active Substance: SITAGLIPTIN
     Indication: Diabetes mellitus
     Dosage: 50 MILLIGRAM, QD
     Route: 065
  4. FLUVASTATIN [Concomitant]
     Active Substance: FLUVASTATIN SODIUM
     Indication: Hypercholesterolaemia
     Dosage: 30 MILLIGRAM, QD
     Route: 065
  5. CARVEDILOL [Concomitant]
     Active Substance: CARVEDILOL
     Indication: Angina pectoris
     Dosage: 5 MILLIGRAM, QD
     Route: 065

REACTIONS (27)
  - Troponin T increased [Unknown]
  - Vascular occlusion [Unknown]
  - Chest pain [Recovered/Resolved]
  - Troponin I increased [Recovered/Resolved]
  - Incomplete spinal fusion [Unknown]
  - Protein total decreased [Unknown]
  - Blood albumin decreased [Unknown]
  - Blood lactate dehydrogenase increased [Unknown]
  - Amylase decreased [Unknown]
  - Blood creatine phosphokinase increased [Unknown]
  - Blood urea increased [Unknown]
  - Blood creatinine increased [Unknown]
  - Blood uric acid increased [Unknown]
  - Blood glucose increased [Unknown]
  - Blood calcium decreased [Unknown]
  - Glomerular filtration rate decreased [Unknown]
  - C-reactive protein increased [Unknown]
  - Red blood cell count decreased [Unknown]
  - Haemoglobin decreased [Unknown]
  - Platelet count decreased [Unknown]
  - Haematocrit decreased [Unknown]
  - Prothrombin time shortened [Unknown]
  - Blood alkaline phosphatase increased [Unknown]
  - Blood cholesterol decreased [Unknown]
  - Low density lipoprotein decreased [Unknown]
  - N-terminal prohormone brain natriuretic peptide increased [Unknown]
  - Incorrect dose administered by product [Unknown]

NARRATIVE: CASE EVENT DATE: 20240101
